FAERS Safety Report 9939192 (Version 1)
Quarter: 2014Q1

REPORT INFORMATION
  Report Type: Report from Study
  Country: US (occurrence: US)
  Receive Date: 20140303
  Receipt Date: 20140303
  Transmission Date: 20141002
  Serious: No
  Sender: FDA-Public Use
  Company Number: US-ABBVIE-13P-163-1036890-00

PATIENT
  Age: 70 Year
  Sex: Male

DRUGS (7)
  1. HUMIRA [Suspect]
     Indication: COLITIS ULCERATIVE
     Dates: start: 20121102
  2. RAPAFLO [Concomitant]
     Indication: PROSTATIC DISORDER
     Dosage: 1 HOUR OF SLEEP
  3. NEXIUM [Concomitant]
     Indication: GASTROOESOPHAGEAL REFLUX DISEASE
  4. MULTIPLE VITAMIN CENTRUM SILVER DAILY [Concomitant]
     Indication: PRODUCT USED FOR UNKNOWN INDICATION
  5. VITAMIN D [Concomitant]
     Indication: PRODUCT USED FOR UNKNOWN INDICATION
  6. BALSALAZIDE DISODIUM [Concomitant]
     Indication: PRODUCT USED FOR UNKNOWN INDICATION
  7. HYDROCORTISONE [Concomitant]
     Indication: PRODUCT USED FOR UNKNOWN INDICATION
     Route: 054

REACTIONS (2)
  - Muscular weakness [Not Recovered/Not Resolved]
  - Urticaria [Not Recovered/Not Resolved]
